FAERS Safety Report 10077675 (Version 1)
Quarter: 2014Q2

REPORT INFORMATION
  Report Type: Report from Study
  Country: MX (occurrence: MX)
  Receive Date: 20140414
  Receipt Date: 20140414
  Transmission Date: 20141212
  Serious: Yes (Other)
  Sender: FDA-Public Use
  Company Number: PHHY2014MX045363

PATIENT
  Age: 78 Year
  Sex: Female

DRUGS (10)
  1. EXELON PATCH [Suspect]
     Indication: MEMORY IMPAIRMENT
     Dosage: 4.6 MG DAILY
     Route: 062
     Dates: start: 20121120
  2. EUTIROX [Concomitant]
     Dosage: UNK UKN, UNK
  3. MICARDIS [Concomitant]
     Indication: HYPERTENSION
     Dosage: UNK UKN, UNK
     Dates: start: 2013
  4. SIES [Concomitant]
     Dosage: UNK UKN, UNK
     Dates: start: 2012
  5. LEXOTAN [Concomitant]
     Indication: INSOMNIA
     Dosage: 1 DF DAILY
  6. LEXOTAN [Concomitant]
     Dosage: 0.5 DF DAILY
  7. GAVINDO [Concomitant]
     Dosage: 2 DF DAILY
  8. EXFORGE HCT [Concomitant]
     Indication: HYPERTENSION
     Dosage: 1 DF DAILY
     Route: 048
     Dates: start: 2010, end: 2013
  9. TRAYENTA [Concomitant]
     Indication: DIABETES MELLITUS
     Dosage: 0.5 DF AS NEEDED
  10. TEGRETOL [Concomitant]
     Dosage: UNK UKN, UNK
     Dates: start: 20121004

REACTIONS (7)
  - Osteopenia [Not Recovered/Not Resolved]
  - Osteoporosis [Not Recovered/Not Resolved]
  - Syncope [Recovered/Resolved]
  - Blood pressure increased [Recovered/Resolved]
  - Malaise [Recovered/Resolved]
  - Headache [Recovered/Resolved]
  - Dizziness [Recovered/Resolved]
